FAERS Safety Report 25709298 (Version 1)
Quarter: 2025Q3

REPORT INFORMATION
  Report Type: Spontaneous
  Country: US (occurrence: US)
  Receive Date: 20250821
  Receipt Date: 20250821
  Transmission Date: 20251021
  Serious: Yes (Other)
  Sender: JOHNSON AND JOHNSON
  Company Number: US-JNJFOC-20250819915

PATIENT
  Sex: Male

DRUGS (5)
  1. RISPERDAL [Suspect]
     Active Substance: RISPERIDONE
     Indication: Attention deficit hyperactivity disorder
     Route: 048
  2. RISPERDAL [Suspect]
     Active Substance: RISPERIDONE
     Indication: Impulsive behaviour
  3. RISPERDAL [Suspect]
     Active Substance: RISPERIDONE
     Indication: Mood swings
  4. RISPERDAL [Suspect]
     Active Substance: RISPERIDONE
     Indication: Anger
  5. CONCERTA [Suspect]
     Active Substance: METHYLPHENIDATE HYDROCHLORIDE
     Indication: Attention deficit hyperactivity disorder
     Route: 048

REACTIONS (7)
  - Erectile dysfunction [Not Recovered/Not Resolved]
  - Infertility [Not Recovered/Not Resolved]
  - Muscle twitching [Unknown]
  - Weight increased [Unknown]
  - Somnolence [Unknown]
  - Gynaecomastia [Not Recovered/Not Resolved]
  - Libido decreased [Not Recovered/Not Resolved]
